FAERS Safety Report 9740460 (Version 1)
Quarter: 2013Q4

REPORT INFORMATION
  Report Type: Spontaneous
  Country: US (occurrence: US)
  Receive Date: 20131209
  Receipt Date: 20131209
  Transmission Date: 20140711
  Serious: No
  Sender: FDA-Public Use
  Company Number: US-BIOGENIDEC-2013BI091111

PATIENT
  Age: 46 Year
  Sex: Female
  Weight: 72 kg

DRUGS (11)
  1. TECFIDERA [Suspect]
     Indication: MULTIPLE SCLEROSIS
     Route: 048
     Dates: start: 20130830, end: 20130905
  2. TECFIDERA [Suspect]
     Indication: MULTIPLE SCLEROSIS
     Route: 048
  3. BACLOFEN [Concomitant]
  4. BIOTIN [Concomitant]
  5. CYMBALTA [Concomitant]
  6. SYNTHROID [Concomitant]
  7. TOPROL XL [Concomitant]
  8. TYLENOL [Concomitant]
  9. VITAMIN C [Concomitant]
  10. XANAX [Concomitant]
  11. ZYRTEC [Concomitant]

REACTIONS (6)
  - Abdominal pain upper [Not Recovered/Not Resolved]
  - Nausea [Not Recovered/Not Resolved]
  - Diarrhoea [Not Recovered/Not Resolved]
  - Abdominal distension [Unknown]
  - Flatulence [Unknown]
  - Vomiting [Unknown]
